FAERS Safety Report 8333531-2 (Version None)
Quarter: 2012Q1

REPORT INFORMATION
  Report Type: 
  Country: None (occurrence: None)
  Receive Date: 20120329
  Receipt Date: 20090714
  Transmission Date: 20120608
  Serious: Yes (Other)
  Sender: FDA-Public Use
  Company Number: PHEH2009US07396

PATIENT
  Age: 84 Year
  Sex: Female

DRUGS (6)
  1. EXELON [Suspect]
     Indication: DEMENTIA ALZHEIMER'S TYPE
     Dosage: 1.5 MG, BID, ORAL
     Route: 048
     Dates: start: 20090601, end: 20090608
  2. NAMENDA [Concomitant]
  3. TRIAMTERENE (TRIAMTERENE) [Concomitant]
  4. LEXAPRO [Concomitant]
  5. NASACORT [Concomitant]
  6. LISINOPRIL [Concomitant]

REACTIONS (2)
  - GASTROINTESTINAL HAEMORRHAGE [None]
  - FAECES DISCOLOURED [None]
